FAERS Safety Report 5710704-6 (Version None)
Quarter: 2008Q2

REPORT INFORMATION
  Report Type: 
  Country: None (occurrence: None)
  Receive Date: 20080421
  Receipt Date: 20080409
  Transmission Date: 20081010
  Serious: Yes (Disabling)
  Sender: FDA-Public Use
  Company Number: JP-JNJFOC-20080401198

PATIENT
  Sex: Female
  Weight: 54 kg

DRUGS (5)
  1. ITRACONAZOLE [Suspect]
     Indication: DRUG USE FOR UNKNOWN INDICATION
     Route: 041
  2. BFLUID [Concomitant]
     Route: 042
  3. GAMOFA [Concomitant]
     Route: 042
  4. MAXIPIME [Concomitant]
     Route: 042
  5. ZEFIX [Concomitant]
     Indication: VIRAL HEPATITIS CARRIER
     Route: 048

REACTIONS (1)
  - CATHETER SITE RELATED REACTION [None]
